FAERS Safety Report 5231389-1 (Version None)
Quarter: 2007Q1

REPORT INFORMATION
  Report Type: 
  Country: None (occurrence: None)
  Receive Date: 20070205
  Receipt Date: 20070205
  Transmission Date: 20070707
  Serious: No
  Sender: FDA-Public Use
  Company Number: None

PATIENT
  Age: 44 Year
  Sex: Male

DRUGS (13)
  1. OXCARBAZEPINE [Suspect]
     Dates: start: 20050131, end: 20060106
  2. SEVOFLOURANE [Suspect]
     Dates: start: 20051208, end: 20051208
  3. ANZEMET [Concomitant]
  4. ZEMURON [Concomitant]
  5. SUCCINYLCHOLINE CHLORIDE [Concomitant]
  6. VERSED [Concomitant]
  7. FENTANYL [Concomitant]
  8. ACIPHEX [Concomitant]
  9. VITAMIN B COMPLEX CAP [Concomitant]
  10. VITAMIN E [Concomitant]
  11. GINSENG [Concomitant]
  12. SAW PALMETTO [Concomitant]
  13. GLUCOSAMINE/CHONDROITIN [Concomitant]

REACTIONS (9)
  - ABDOMINAL PAIN [None]
  - ALANINE AMINOTRANSFERASE INCREASED [None]
  - ASPARTATE AMINOTRANSFERASE INCREASED [None]
  - BLOOD ALKALINE PHOSPHATASE INCREASED [None]
  - HEPATOCELLULAR DAMAGE [None]
  - JAUNDICE [None]
  - NAUSEA [None]
  - URINE COLOUR ABNORMAL [None]
  - VOMITING [None]
